FAERS Safety Report 15226865 (Version 1)
Quarter: 2018Q3

REPORT INFORMATION
  Report Type: Spontaneous
  Country: US (occurrence: US)
  Receive Date: 20180801
  Receipt Date: 20180801
  Transmission Date: 20181010
  Serious: Yes (Other)
  Sender: FDA-Public Use
  Company Number: US-BAYER-2018-138585

PATIENT
  Age: 41 Year
  Sex: Female
  Weight: 80 kg

DRUGS (1)
  1. COPPERTONE SPORT SPF 30 SPRAY [Suspect]
     Active Substance: AVOBENZONE\HOMOSALATE\OCTISALATE\OCTOCRYLENE\OXYBENZONE
     Indication: THERAPEUTIC SKIN CARE TOPICAL
     Dosage: 1 DF, UNK
     Route: 061
     Dates: start: 20180712, end: 20180712

REACTIONS (5)
  - Sunburn [Recovering/Resolving]
  - Pruritus [Recovering/Resolving]
  - Joint swelling [Recovering/Resolving]
  - Drug ineffective [None]
  - Pain of skin [Recovering/Resolving]

NARRATIVE: CASE EVENT DATE: 20180712
